FAERS Safety Report 7909165-8 (Version None)
Quarter: 2011Q4

REPORT INFORMATION
  Report Type: 
  Country: None (occurrence: None)
  Receive Date: 20111111
  Receipt Date: 20110422
  Transmission Date: 20120403
  Serious: No
  Sender: FDA-Public Use
  Company Number: US-GLAXOSMITHKLINE-A0924214A

PATIENT
  Age: 73 Year
  Sex: Female

DRUGS (2)
  1. COREG [Suspect]
     Indication: HYPERTENSION
     Dosage: 25MG PER DAY
     Route: 048
     Dates: start: 20100901
  2. NAPROSYN [Concomitant]

REACTIONS (11)
  - HYPOTENSION [None]
  - OEDEMA PERIPHERAL [None]
  - MYALGIA [None]
  - COUGH [None]
  - MUSCULOSKELETAL DISCOMFORT [None]
  - LARYNGITIS [None]
  - PERFORMANCE STATUS DECREASED [None]
  - ATAXIA [None]
  - ASTHENIA [None]
  - PAIN [None]
  - DYSPHONIA [None]
